FAERS Safety Report 8220990-9 (Version None)
Quarter: 2012Q1

REPORT INFORMATION
  Report Type: 
  Country: None (occurrence: None)
  Receive Date: 20120320
  Receipt Date: 20120316
  Transmission Date: 20120608
  Serious: No
  Sender: FDA-Public Use
  Company Number: US-BAYER-2012-026889

PATIENT
  Sex: Female

DRUGS (11)
  1. LABETALOL HCL [Concomitant]
     Dosage: 100 MG TAB
  2. NIFEDIAC CC [Concomitant]
     Dosage: 60 MG ER
  3. SPIRONOLACTONE [Concomitant]
     Dosage: 50 MG
  4. CALCIUM CARBONATE [Concomitant]
     Dosage: 600 MG
  5. SIMVASTATIN [Concomitant]
     Dosage: 80 MG
  6. BETASERON [Suspect]
     Indication: PRODUCT USED FOR UNKNOWN INDICATION
     Dosage: 0.3 MG, UNK
     Route: 058
  7. DETROL [Concomitant]
     Dosage: 1 MG
  8. VITAMIN D [Concomitant]
     Dosage: 5000 UNITS
  9. ESTER-C [Concomitant]
     Dosage: 500 MG
  10. ASPIRIN [Concomitant]
     Dosage: 81 MG
  11. OCUVITE [VIT C,BETACAROT,CUPRIC OXIDE,SE+,VIT E,ZNO] [Concomitant]

REACTIONS (2)
  - INFLUENZA [None]
  - CHILLS [None]
